FAERS Safety Report 21374624 (Version 3)
Quarter: 2022Q4

REPORT INFORMATION
  Report Type: Report from Study
  Country: US (occurrence: US)
  Receive Date: 20220926
  Receipt Date: 20221122
  Transmission Date: 20230113
  Serious: No
  Sender: FDA-Public Use
  Company Number: US-NOVARTISTESTPH-NVSC2022US216082

PATIENT
  Sex: Female

DRUGS (2)
  1. COSENTYX [Suspect]
     Active Substance: SECUKINUMAB
     Indication: Ankylosing spondylitis
     Dosage: 150 MG, QW (ONCE A WEEK FOR 5 WEEKS)
     Route: 058
     Dates: start: 20220824
  2. COSENTYX [Suspect]
     Active Substance: SECUKINUMAB
     Dosage: 150 MG, QMO (THEN EVERY 4 WEEKS)
     Route: 058

REACTIONS (5)
  - Spinal pain [Unknown]
  - Inflammatory marker increased [Unknown]
  - Arthralgia [Unknown]
  - Pain in extremity [Unknown]
  - Drug ineffective [Unknown]
